FAERS Safety Report 7750480-9 (Version None)
Quarter: 2011Q3

REPORT INFORMATION
  Report Type: 
  Country: None (occurrence: None)
  Receive Date: 20110914
  Receipt Date: 20110830
  Transmission Date: 20111222
  Serious: Yes (Other)
  Sender: FDA-Public Use
  Company Number: US-ENDO PHARMACEUTICALS INC.-OPIR20110050

PATIENT
  Sex: Male

DRUGS (1)
  1. OPANA [Suspect]
     Dosage: 10 MG
     Route: 048

REACTIONS (2)
  - DRUG SCREEN POSITIVE [None]
  - DRUG ABUSE [None]
